FAERS Safety Report 12187723 (Version 3)
Quarter: 2016Q2

REPORT INFORMATION
  Report Type: Spontaneous
  Country: US (occurrence: US)
  Receive Date: 20160317
  Receipt Date: 20160520
  Transmission Date: 20160815
  Serious: Yes (Hospitalization, Other)
  Sender: FDA-Public Use
  Company Number: US-009507513-1603USA007219

PATIENT
  Age: 21 Year
  Sex: Female
  Weight: 45.35 kg

DRUGS (1)
  1. IMPLANON [Suspect]
     Active Substance: ETONOGESTREL
     Indication: CONTRACEPTION
     Dosage: UNK
     Route: 030
     Dates: start: 2011, end: 2014

REACTIONS (4)
  - Device deployment issue [Recovered/Resolved]
  - General anaesthesia [Recovered/Resolved]
  - Incorrect route of drug administration [Unknown]
  - Complication associated with device [Recovered/Resolved]

NARRATIVE: CASE EVENT DATE: 2011
